FAERS Safety Report 17525905 (Version 2)
Quarter: 2020Q2

REPORT INFORMATION
  Report Type: Spontaneous
  Country: US (occurrence: US)
  Receive Date: 20200310
  Receipt Date: 20200527
  Transmission Date: 20200713
  Serious: No
  Sender: FDA-Public Use
  Company Number: US-TEVA-2020-US-1197059

PATIENT

DRUGS (7)
  1. LIDOCAINE PATCH 5 % ACTAVIS [Suspect]
     Active Substance: LIDOCAINE
     Indication: BACK PAIN
     Dosage: 100 MG 5% X 1 DAILY
     Route: 062
     Dates: start: 20200225, end: 20200227
  2. SWANSON HIGH POTENCY MULTIVITAMINS [Concomitant]
     Dosage: 1 TAB MORNING
     Route: 065
  3. VITAMIN B12 [Concomitant]
     Active Substance: CYANOCOBALAMIN
     Dosage: MORNING
     Route: 065
  4. VITAMIN D [Concomitant]
     Active Substance: VITAMIN D NOS
     Dosage: 1000 MG MORNING
     Route: 065
  5. OMEPRAZOLE. [Concomitant]
     Active Substance: OMEPRAZOLE
     Route: 065
  6. SUPER CALCIUM WITH VITAMIN D [Concomitant]
     Dosage: SUPER CALCIUM-750MG, VITAMIN D- 500MG, MORNING AND EVENING
     Route: 065
  7. VITAMIN C [Concomitant]
     Active Substance: ASCORBIC ACID
     Dosage: MORNING
     Route: 065

REACTIONS (3)
  - Application site hypersensitivity [Unknown]
  - Dermatitis contact [Recovered/Resolved]
  - Application site rash [Recovered/Resolved]
